FAERS Safety Report 21337216 (Version 1)
Quarter: 2022Q3

REPORT INFORMATION
  Report Type: Spontaneous
  Country: US (occurrence: None)
  Receive Date: 20220914
  Receipt Date: 20220914
  Transmission Date: 20221027
  Serious: Yes (Hospitalization)
  Sender: FDA-Public Use
  Company Number: None

PATIENT

DRUGS (2)
  1. CHLORAPREP ONE-STEP [Suspect]
     Active Substance: CHLORHEXIDINE GLUCONATE\ISOPROPYL ALCOHOL
  2. DEVICE [Suspect]
     Active Substance: DEVICE

REACTIONS (2)
  - Burns second degree [None]
  - Device catching fire [None]

NARRATIVE: CASE EVENT DATE: 20220908
